FAERS Safety Report 8435087-2 (Version None)
Quarter: 2012Q2

REPORT INFORMATION
  Report Type: 
  Country: None (occurrence: None)
  Receive Date: 20120614
  Receipt Date: 20120606
  Transmission Date: 20120825
  Serious: Yes (Hospitalization)
  Sender: FDA-Public Use
  Company Number: PHEH2012US011496

PATIENT
  Sex: Male

DRUGS (3)
  1. LOPRESSOR [Suspect]
     Dosage: 50 MG, BID
     Dates: start: 19770101
  2. ALTACE [Concomitant]
     Dosage: 10 MG, BID
  3. TRIAMP HCTZ [Concomitant]
     Dosage: 0.5 DF(37.5 MG HCTZ/ 25 MG TRIA), QOD

REACTIONS (3)
  - HEART RATE DECREASED [None]
  - WEIGHT INCREASED [None]
  - PAIN [None]
